FAERS Safety Report 13482177 (Version 2)
Quarter: 2017Q2

REPORT INFORMATION
  Report Type: Spontaneous
  Country: JP (occurrence: JP)
  Receive Date: 20170424
  Receipt Date: 20170424
  Transmission Date: 20170830
  Serious: Yes (Other)
  Sender: FDA-Public Use
  Company Number: JP-ROCHE-1903020

PATIENT
  Age: 63 Year
  Sex: Female

DRUGS (3)
  1. ASPIRIN. [Concomitant]
     Active Substance: ASPIRIN
     Dosage: DOSAGE IS UNCERTAIN.
     Route: 065
  2. TAMIFLU [Suspect]
     Active Substance: OSELTAMIVIR PHOSPHATE
     Indication: INFLUENZA
     Route: 048
     Dates: start: 20170203, end: 20170207
  3. PARIET [Concomitant]
     Active Substance: RABEPRAZOLE SODIUM
     Dosage: DOSAGE IS UNCERTAIN.
     Route: 065

REACTIONS (3)
  - Loss of consciousness [Recovered/Resolved]
  - Dehydration [Unknown]
  - Blood pressure decreased [Unknown]

NARRATIVE: CASE EVENT DATE: 20170204
